FAERS Safety Report 19483132 (Version 1)
Quarter: 2021Q3

REPORT INFORMATION
  Report Type: Spontaneous
  Country: JP (occurrence: JP)
  Receive Date: 20210701
  Receipt Date: 20210701
  Transmission Date: 20211014
  Serious: Yes (Death, Hospitalization, Other)
  Sender: FDA-Public Use
  Company Number: JP-JNJFOC-20210658590

PATIENT
  Age: 50 Year
  Sex: Female

DRUGS (3)
  1. OPSUMIT [Suspect]
     Active Substance: MACITENTAN
     Indication: PULMONARY HYPERTENSION
     Dosage: DOSE UNKNOWN
     Route: 048
  2. EPOPROSTENOL SODIUM. [Suspect]
     Active Substance: EPOPROSTENOL SODIUM
     Indication: PULMONARY HYPERTENSION
     Dosage: DOSE UNKNOWN
     Route: 042
  3. ADCIRCA [Suspect]
     Active Substance: TADALAFIL
     Indication: PULMONARY HYPERTENSION
     Route: 048

REACTIONS (5)
  - Collateral circulation [Unknown]
  - Pulmonary artery aneurysm [Unknown]
  - Death [Fatal]
  - Haemoptysis [Unknown]
  - Right ventricular failure [Unknown]
